FAERS Safety Report 4756158-8 (Version None)
Quarter: 2005Q3

REPORT INFORMATION
  Report Type: 
  Country: None (occurrence: None)
  Receive Date: 20050829
  Receipt Date: 20050829
  Transmission Date: 20060218
  Serious: Yes (Death)
  Sender: FDA-Public Use
  Company Number: None

PATIENT
  Sex: Male
  Weight: 63.05 kg

DRUGS (2)
  1. PAROXETINE    20MG  TABLET   PAR [Suspect]
     Indication: ANXIETY
     Dosage: 20MG   DAILY  PO
     Route: 048
     Dates: start: 20050427, end: 20050822
  2. PAROXETINE    20MG  TABLET   PAR [Suspect]
     Indication: DEPRESSION
     Dosage: 20MG   DAILY  PO
     Route: 048
     Dates: start: 20050427, end: 20050822

REACTIONS (1)
  - COMPLETED SUICIDE [None]
